FAERS Safety Report 10520706 (Version 9)
Quarter: 2015Q4

REPORT INFORMATION
  Report Type: Spontaneous
  Country: US (occurrence: US)
  Receive Date: 20141015
  Receipt Date: 20151103
  Transmission Date: 20160304
  Serious: No
  Sender: FDA-Public Use
  Company Number: US-PFIZER INC-2014280773

PATIENT
  Age: 65 Year
  Sex: Male
  Weight: 73 kg

DRUGS (11)
  1. SUTENT [Suspect]
     Active Substance: SUNITINIB MALATE
     Dosage: 50 MG, CYCLIC (DAILY FOR 28 DAYS + 14 DAYS OFF)
     Route: 048
     Dates: start: 201402
  2. BENAZEPRIL [Concomitant]
     Active Substance: BENAZEPRIL HYDROCHLORIDE
     Dosage: UNK
  3. SUTENT [Suspect]
     Active Substance: SUNITINIB MALATE
     Indication: METASTATIC RENAL CELL CARCINOMA
     Dosage: 50 MG, CYCLIC (4 WEEKS ON AND 2 WEEKS OFF)
     Dates: start: 20140407
  4. SUTENT [Suspect]
     Active Substance: SUNITINIB MALATE
     Dosage: 37.5 MG, CYCLIC (DAILY FOR 28 DAYS ON / 14 DAYS OFF)
     Dates: start: 201506, end: 201508
  5. AGS-003 [Concomitant]
     Indication: METASTATIC RENAL CELL CARCINOMA
     Dosage: UNK
     Route: 023
  6. KETOCONAZOLE. [Concomitant]
     Active Substance: KETOCONAZOLE
     Dosage: UNK
  7. PRILOSEC [Concomitant]
     Active Substance: OMEPRAZOLE MAGNESIUM
     Dosage: UNK
  8. LEVOTHYROXINE. [Concomitant]
     Active Substance: LEVOTHYROXINE
     Dosage: UNK
  9. SUTENT [Suspect]
     Active Substance: SUNITINIB MALATE
     Dosage: 37.5 MG, CYCLIC (28 DAYS ON / 14 DAYS OFF)
     Dates: end: 201508
  10. IMODIUM [Concomitant]
     Active Substance: LOPERAMIDE HYDROCHLORIDE
     Dosage: UNK
  11. L-LYSINE [Concomitant]
     Active Substance: LYSINE
     Dosage: UNK

REACTIONS (33)
  - Palmar-plantar erythrodysaesthesia syndrome [Not Recovered/Not Resolved]
  - Feeling cold [Not Recovered/Not Resolved]
  - Diarrhoea [Not Recovered/Not Resolved]
  - Chapped lips [Unknown]
  - Weight decreased [Recovering/Resolving]
  - Thrombocytopenia [Recovered/Resolved]
  - Rash maculo-papular [Unknown]
  - Ingrowing nail [Unknown]
  - Nausea [Recovered/Resolved]
  - Stomatitis [Recovered/Resolved]
  - Chills [Not Recovered/Not Resolved]
  - Muscle fatigue [Not Recovered/Not Resolved]
  - Disease progression [Unknown]
  - Dry skin [Not Recovered/Not Resolved]
  - Blood pressure increased [Unknown]
  - Hypothyroidism [Unknown]
  - Dyspepsia [Unknown]
  - Temperature intolerance [Not Recovered/Not Resolved]
  - Pruritus [Unknown]
  - Hyperkeratosis [Unknown]
  - Hyperaesthesia [Unknown]
  - Metastatic renal cell carcinoma [Unknown]
  - Epistaxis [Not Recovered/Not Resolved]
  - Blood count abnormal [Not Recovered/Not Resolved]
  - Dysgeusia [Not Recovered/Not Resolved]
  - Pain in extremity [Unknown]
  - Blister [Unknown]
  - Decreased appetite [Not Recovered/Not Resolved]
  - Rash macular [Unknown]
  - Insomnia [Not Recovered/Not Resolved]
  - Oral pain [Recovered/Resolved]
  - Lip dry [Unknown]
  - Rash [Unknown]
